FAERS Safety Report 5736005-8 (Version None)
Quarter: 2008Q2

REPORT INFORMATION
  Report Type: 
  Country: None (occurrence: None)
  Receive Date: 20080513
  Receipt Date: 20080508
  Transmission Date: 20081010
  Serious: Yes (Hospitalization)
  Sender: FDA-Public Use
  Company Number: MX-ABBOTT-08P-107-0448724-00

PATIENT
  Sex: Male
  Weight: 60.5 kg

DRUGS (2)
  1. KALETRA [Suspect]
     Indication: HIV INFECTION
     Dosage: 400/100MG, 2 IN 1 DAY
     Route: 048
     Dates: start: 20060818
  2. LAMIVUDINE + ZIDOVUDINE [Concomitant]
     Indication: HIV INFECTION
     Dosage: 150/300MG
     Route: 048
     Dates: start: 20060818

REACTIONS (8)
  - ALTERED STATE OF CONSCIOUSNESS [None]
  - AMNESIA [None]
  - DELIRIUM [None]
  - DISORIENTATION [None]
  - GLYCOSURIA [None]
  - GRAND MAL CONVULSION [None]
  - LOSS OF CONSCIOUSNESS [None]
  - PROGRESSIVE MULTIFOCAL LEUKOENCEPHALOPATHY [None]
